FAERS Safety Report 5914831-X (Version None)
Quarter: 2008Q4

REPORT INFORMATION
  Report Type: 
  Country: None (occurrence: None)
  Receive Date: 20081010
  Receipt Date: 20081001
  Transmission Date: 20090506
  Serious: Yes (Hospitalization, Other)
  Sender: FDA-Public Use
  Company Number: US-ROCHE-470587

PATIENT
  Sex: Female
  Weight: 58.1 kg

DRUGS (5)
  1. ACCUTANE [Suspect]
     Route: 048
     Dates: start: 19840101
  2. ACCUTANE [Suspect]
     Dosage: STRENGTH: 20 MG.
     Route: 048
     Dates: start: 20040209
  3. ACCUTANE [Suspect]
     Route: 048
     Dates: start: 20040101
  4. AMNESTEEM [Concomitant]
     Dates: start: 20040209, end: 20040413
  5. XANAX [Concomitant]
     Indication: ANXIETY
     Route: 048

REACTIONS (18)
  - ADENOMA BENIGN [None]
  - BLOOD CHOLESTEROL INCREASED [None]
  - DIVERTICULITIS [None]
  - ELBOW OPERATION [None]
  - GALLBLADDER POLYP [None]
  - HAEMANGIOMA OF LIVER [None]
  - HAEMORRHAGE [None]
  - HAEMORRHOIDS [None]
  - HYDRONEPHROSIS [None]
  - HYPERSENSITIVITY [None]
  - HYSTERECTOMY [None]
  - INTERVERTEBRAL DISC PROTRUSION [None]
  - IRRITABLE BOWEL SYNDROME [None]
  - LARGE INTESTINE PERFORATION [None]
  - OSTEOPENIA [None]
  - OVARIAN CYST [None]
  - PEPTIC ULCER [None]
  - VISION BLURRED [None]
